FAERS Safety Report 8600226 (Version 3)
Quarter: 2012Q4

REPORT INFORMATION
  Report Type: 
  Country: BE (occurrence: BE)
  Receive Date: 20120605
  Receipt Date: 20121116
  Transmission Date: 20130627
  Serious: Yes (Hospitalization, Other)
  Sender: FDA-Public Use
  Company Number: BE-ELI_LILLY_AND_COMPANY-BE201205010217

PATIENT
  Sex: Female
  Weight: 68 kg

DRUGS (11)
  1. BYETTA [Suspect]
     Indication: TYPE 2 DIABETES MELLITUS
     Dosage: 5 ug, unknown
     Dates: start: 2008
  2. BYETTA [Suspect]
     Dosage: 10 ug, qd
     Dates: end: 201204
  3. GLUCOPHAGE [Concomitant]
     Dosage: 500 DF, qd
     Dates: start: 2002
  4. L THYROXINE [Concomitant]
     Dosage: 125 DF, UNK
     Dates: start: 1992
  5. ZESTORETIC [Concomitant]
     Dosage: UNK
     Dates: start: 1997
  6. ASAFLOW [Concomitant]
     Dosage: 1 DF, UNK
     Dates: start: 2002
  7. SERENASE                           /00027401/ [Concomitant]
     Dosage: 1 DF, qd
     Dates: start: 1997
  8. CRESTOR [Concomitant]
     Dosage: 1 DF, qd
  9. PANTOMED                           /01263204/ [Concomitant]
     Dosage: 20 DF, qd
     Dates: start: 2007
  10. LITICAN                                 /BEL/ [Concomitant]
     Dosage: UNK
  11. ZOLPIDEM [Concomitant]
     Dosage: UNK
     Dates: start: 2002

REACTIONS (3)
  - Ovarian cancer [Unknown]
  - Eczema [Recovered/Resolved]
  - Weight decreased [Unknown]
